FAERS Safety Report 10199986 (Version 1)
Quarter: 2014Q2

REPORT INFORMATION
  Report Type: Spontaneous
  Country: JP (occurrence: JP)
  Receive Date: 20140527
  Receipt Date: 20140527
  Transmission Date: 20141212
  Serious: Yes (Death)
  Sender: FDA-Public Use
  Company Number: JP-ALLERGAN-1410984US

PATIENT
  Age: 73 Year
  Sex: Male

DRUGS (1)
  1. BOTOX [Suspect]
     Indication: MUSCLE SPASMS
     Dosage: 80 UNITS, SINGLE
     Route: 030
     Dates: start: 20140217, end: 20140217

REACTIONS (1)
  - Pneumonia aspiration [Fatal]
